FAERS Safety Report 8140417-5 (Version None)
Quarter: 2012Q1

REPORT INFORMATION
  Report Type: 
  Country: None (occurrence: None)
  Receive Date: 20120216
  Receipt Date: 20120207
  Transmission Date: 20120608
  Serious: No
  Sender: FDA-Public Use
  Company Number: US-BAYER-2011-123510

PATIENT
  Age: 18 Year
  Sex: Female

DRUGS (1)
  1. MIRENA [Suspect]
     Indication: CONTRACEPTION
     Dosage: 20 MCG/24HR, CONT
     Route: 015
     Dates: start: 20111116

REACTIONS (9)
  - PREGNANCY [None]
  - ABDOMINAL PAIN [None]
  - SENSATION OF FOREIGN BODY [None]
  - MENORRHAGIA [None]
  - MENSTRUAL DISORDER [None]
  - VAGINAL DISCHARGE [None]
  - HYPOMENORRHOEA [None]
  - MALAISE [None]
  - ANXIETY [None]
